FAERS Safety Report 13185712 (Version 1)
Quarter: 2017Q1

REPORT INFORMATION
  Report Type: Spontaneous
  Country: US (occurrence: US)
  Receive Date: 20170203
  Receipt Date: 20170203
  Transmission Date: 20170428
  Serious: No
  Sender: FDA-Public Use
  Company Number: GXBR2016US000672

PATIENT
  Sex: Female

DRUGS (1)
  1. CLOBETASOL PROPIONATE. [Suspect]
     Active Substance: CLOBETASOL PROPIONATE
     Indication: VULVOVAGINAL DISCOMFORT
     Dosage: 0.05 %, UNK
     Route: 067

REACTIONS (2)
  - Burning sensation [Unknown]
  - Pain [Unknown]
